FAERS Safety Report 11540836 (Version 1)
Quarter: 2015Q3

REPORT INFORMATION
  Report Type: Spontaneous
  Country: US (occurrence: US)
  Receive Date: 20150923
  Receipt Date: 20150923
  Transmission Date: 20151125
  Serious: No
  Sender: FDA-Public Use
  Company Number: US-UPSHER-SMITH LABORATORIES, INC.-15002366

PATIENT
  Sex: Male

DRUGS (1)
  1. VOGELXO [Suspect]
     Active Substance: TESTOSTERONE
     Indication: FATIGUE
     Dosage: UNK, UNK
     Route: 061

REACTIONS (2)
  - Weight increased [Unknown]
  - Irritability [Unknown]
